FAERS Safety Report 23487848 (Version 1)
Quarter: 2024Q1

REPORT INFORMATION
  Report Type: Spontaneous
  Country: US (occurrence: None)
  Receive Date: 20240206
  Receipt Date: 20240206
  Transmission Date: 20240410
  Serious: Yes (Death)
  Sender: FDA-Public Use
  Company Number: None

PATIENT
  Age: 37 Year
  Sex: Male

DRUGS (1)
  1. LUMAKRAS [Suspect]
     Active Substance: SOTORASIB
     Indication: Lung neoplasm malignant
     Dosage: FREQUENCY : DAILY;?
     Dates: start: 202401

REACTIONS (2)
  - Disease progression [None]
  - Lung neoplasm malignant [None]

NARRATIVE: CASE EVENT DATE: 20240204
